FAERS Safety Report 7206104-2 (Version None)
Quarter: 2011Q1

REPORT INFORMATION
  Report Type: 
  Country: None (occurrence: None)
  Receive Date: 20110103
  Receipt Date: 20101220
  Transmission Date: 20110831
  Serious: Yes (Hospitalization, Disabling)
  Sender: FDA-Public Use
  Company Number: US-ELI_LILLY_AND_COMPANY-US201012005386

PATIENT
  Sex: Female

DRUGS (17)
  1. GABAPENTIN [Concomitant]
  2. PRAVASTATIN [Concomitant]
  3. FLUDROCORTISONE [Concomitant]
  4. BYSTOLIC [Concomitant]
  5. VITAMIN B-12 [Concomitant]
  6. FORTEO [Suspect]
     Indication: BONE DENSITY DECREASED
     Dosage: 20 UG, DAILY (1/D)
     Route: 058
     Dates: end: 20100901
  7. MULTI-VITAMIN [Concomitant]
  8. CITRACAL-D [Concomitant]
  9. CRANBERRY [Concomitant]
  10. POTASSIUM [Concomitant]
  11. BUPROPION [Concomitant]
  12. PLAVIX [Concomitant]
  13. LISINOPRIL [Concomitant]
  14. FISH OIL [Concomitant]
  15. FLUOXETINE [Concomitant]
  16. HYDROCORTISONE [Concomitant]
  17. VITAMIN D3 [Concomitant]

REACTIONS (4)
  - MOVEMENT DISORDER [None]
  - DECREASED APPETITE [None]
  - WALKING DISABILITY [None]
  - ASTHENIA [None]
